FAERS Safety Report 11254971 (Version 1)
Quarter: 2015Q3

REPORT INFORMATION
  Report Type: Report from Study
  Country: JP (occurrence: JP)
  Receive Date: 20150709
  Receipt Date: 20150709
  Transmission Date: 20151125
  Serious: No
  Sender: FDA-Public Use
  Company Number: JP-SA-THYM-1003541

PATIENT
  Age: 23 Year
  Sex: Male
  Weight: 53.7 kg

DRUGS (14)
  1. GRAN [Suspect]
     Active Substance: FILGRASTIM
     Indication: ILL-DEFINED DISORDER
     Dosage: 600 MCG, QD
     Route: 065
     Dates: start: 20121128, end: 20130122
  2. THYMOGLOBULINE [Suspect]
     Active Substance: LAPINE T-LYMPHOCYTE IMMUNE GLOBULIN
     Indication: APLASTIC ANAEMIA
     Dosage: FREQ: OVER 23 HOUR
     Route: 042
     Dates: start: 20121128, end: 20121203
  3. TEPRENONE [Concomitant]
     Active Substance: TEPRENONE
     Indication: GASTRITIS PROPHYLAXIS
     Dates: start: 20121225, end: 20121231
  4. BACTRAMIN [Concomitant]
     Active Substance: SULFAMETHOXAZOLE\TRIMETHOPRIM
     Indication: INFECTION PROPHYLAXIS
     Dates: start: 20121108
  5. THYMOGLOBULINE [Suspect]
     Active Substance: LAPINE T-LYMPHOCYTE IMMUNE GLOBULIN
     Indication: APLASTIC ANAEMIA
     Dosage: FREQ: OVER 1 HOUR?STRENGTH: 25MG INJECTION
     Route: 042
     Dates: start: 20121128, end: 20121203
  6. FLUCONAZOLE. [Concomitant]
     Active Substance: FLUCONAZOLE
     Indication: INFECTION PROPHYLAXIS
     Dates: start: 20121108, end: 20130226
  7. MAGMITT [Concomitant]
     Active Substance: MAGNESIUM OXIDE
     Indication: CONSTIPATION PROPHYLAXIS
     Dates: start: 20121112, end: 20130311
  8. ATARAX-P [Concomitant]
     Active Substance: HYDROXYZINE HYDROCHLORIDE
     Indication: PROPHYLAXIS
     Dates: start: 20121128, end: 20121202
  9. OMEPRAZOLE. [Concomitant]
     Active Substance: OMEPRAZOLE
     Indication: GASTRITIS PROPHYLAXIS
     Dates: start: 20121205, end: 20121224
  10. THYMOGLOBULINE [Suspect]
     Active Substance: LAPINE T-LYMPHOCYTE IMMUNE GLOBULIN
     Indication: APLASTIC ANAEMIA
     Route: 042
     Dates: start: 20121129, end: 20121203
  11. FAMOTIDINE. [Concomitant]
     Active Substance: FAMOTIDINE
     Indication: GASTRITIS PROPHYLAXIS
     Dates: start: 20121127, end: 20121206
  12. THYMOGLOBULINE [Suspect]
     Active Substance: LAPINE T-LYMPHOCYTE IMMUNE GLOBULIN
     Indication: APLASTIC ANAEMIA
     Dosage: FREQ: OVER 1 HOUR?STRENGTH: 25MG INJECTION
     Route: 042
     Dates: start: 20121128, end: 20121203
  13. CICLOSPORIN [Suspect]
     Active Substance: CYCLOSPORINE
     Indication: APLASTIC ANAEMIA
     Route: 065
     Dates: start: 20121128, end: 20130130
  14. SOL-MELCORT [Concomitant]
     Active Substance: METHYLPREDNISOLONE SODIUM SUCCINATE
     Indication: PROPHYLAXIS
     Dates: start: 20121127, end: 20121224

REACTIONS (3)
  - Respiratory disorder [Recovering/Resolving]
  - Back pain [Recovering/Resolving]
  - Cytomegalovirus infection [Recovering/Resolving]

NARRATIVE: CASE EVENT DATE: 20121203
